FAERS Safety Report 6119661-4 (Version None)
Quarter: 2009Q1

REPORT INFORMATION
  Report Type: 
  Country: None (occurrence: None)
  Receive Date: 20090316
  Receipt Date: 20090305
  Transmission Date: 20090719
  Serious: Yes (Life-Threatening, Hospitalization)
  Sender: FDA-Public Use
  Company Number: CH-JNJFOC-20090301932

PATIENT
  Age: 58 Year
  Sex: Female

DRUGS (10)
  1. REMICADE [Suspect]
     Indication: JUVENILE ARTHRITIS
     Route: 042
  2. METHOTREXATE [Suspect]
     Indication: JUVENILE ARTHRITIS
     Route: 048
  3. PREDNISONE [Suspect]
     Indication: JUVENILE ARTHRITIS
     Route: 048
  4. ASPIRIN [Concomitant]
     Indication: MYOCARDIAL ISCHAEMIA
     Route: 048
  5. METOZEROK [Concomitant]
     Indication: MYOCARDIAL ISCHAEMIA
     Route: 048
  6. EZETROL [Concomitant]
     Indication: HYPERLIPIDAEMIA
     Route: 048
  7. FOLIC ACID [Concomitant]
     Route: 048
  8. DIFLUCAN [Concomitant]
     Route: 048
  9. SPIRIVA [Concomitant]
     Route: 055
  10. SYMBICORT [Concomitant]
     Dosage: 200/6 UG
     Route: 055

REACTIONS (4)
  - BACTERIAL SEPSIS [None]
  - CELLULITIS [None]
  - METABOLIC ACIDOSIS [None]
  - OLIGURIA [None]
